FAERS Safety Report 9894074 (Version 2)
Quarter: 2014Q2

REPORT INFORMATION
  Report Type: Spontaneous
  Country: PE (occurrence: PE)
  Receive Date: 20140213
  Receipt Date: 20140430
  Transmission Date: 20141212
  Serious: Yes (Other)
  Sender: FDA-Public Use
  Company Number: PHHY2014PE015779

PATIENT
  Age: 33 Year
  Sex: Female

DRUGS (5)
  1. METHOTREXATE [Suspect]
     Indication: MYOPATHY
     Dosage: 12.5 MG, UNK
     Dates: start: 1999
  2. METHOTREXATE [Suspect]
     Dosage: 20 MG, QW
     Route: 058
     Dates: start: 2009
  3. PREDNISONE [Suspect]
     Indication: MYOPATHY
     Dosage: 1 MG/KG, PER DAY
     Dates: end: 200809
  4. PREDNISONE [Suspect]
     Dosage: 10 MG, PER DAY
  5. PREDNISONE [Suspect]
     Dosage: 20 MG, PER DAY

REACTIONS (6)
  - Myopathy [Recovered/Resolved]
  - Skin lesion [Recovered/Resolved]
  - Muscular weakness [Recovered/Resolved]
  - Erythema [Recovered/Resolved]
  - Pain [Recovered/Resolved]
  - Condition aggravated [Recovered/Resolved]
